FAERS Safety Report 4935856-7 (Version None)
Quarter: 2006Q1

REPORT INFORMATION
  Report Type: 
  Country: None (occurrence: None)
  Receive Date: 20060127
  Receipt Date: 20051201
  Transmission Date: 20060701
  Serious: Yes (Other)
  Sender: FDA-Public Use
  Company Number: 2005163348

PATIENT
  Age: 74 Year
  Sex: Female
  Weight: 64.4108 kg

DRUGS (6)
  1. LYRICA [Suspect]
     Indication: NEUROPATHY PERIPHERAL
     Dosage: 150 MT (50 MG, 3 IN 1 D), ORAL
     Route: 048
     Dates: start: 20051101
  2. NORTRIPTYLINE (NORTRIPTYLINE) [Suspect]
     Indication: NEUROPATHY
     Dosage: 10 (10 MG
     Dates: start: 20051125
  3. PREMARIN [Concomitant]
  4. MAXZIDE (HYDROCHLOROTHIAZIDEM TRIAMTERENE) [Concomitant]
  5. ASPIRIN [Concomitant]
  6. ULTRAM [Concomitant]

REACTIONS (2)
  - DRUG INEFFECTIVE [None]
  - MIDDLE INSOMNIA [None]
